FAERS Safety Report 23882435 (Version 1)
Quarter: 2024Q2

REPORT INFORMATION
  Report Type: Spontaneous
  Country: JP (occurrence: JP)
  Receive Date: 20240522
  Receipt Date: 20240522
  Transmission Date: 20240716
  Serious: Yes (Hospitalization, Other)
  Sender: FDA-Public Use
  Company Number: None

PATIENT
  Age: 42 Year
  Sex: Female
  Weight: 94 kg

DRUGS (25)
  1. TRESIBA [Suspect]
     Active Substance: INSULIN DEGLUDEC
     Indication: Type 2 diabetes mellitus
     Dosage: 40 IU, QD
     Route: 058
  2. TRESIBA [Suspect]
     Active Substance: INSULIN DEGLUDEC
     Dosage: 35 IU, QD
     Route: 058
     Dates: start: 20230628
  3. TRESIBA [Suspect]
     Active Substance: INSULIN DEGLUDEC
     Dosage: 25 TO 30 U/DAY
     Route: 058
     Dates: start: 20230616
  4. NOVORAPID [Suspect]
     Active Substance: INSULIN ASPART
     Dosage: 10 IU, TID
     Route: 058
     Dates: start: 20230628
  5. NOVORAPID [Suspect]
     Active Substance: INSULIN ASPART
     Indication: Type 2 diabetes mellitus
     Dosage: 30 IU, TID (TOTAL 90 IU)
     Route: 058
  6. NOVORAPID [Suspect]
     Active Substance: INSULIN ASPART
     Dosage: 4 UNITS, 6 UNITS , 8 UNITS
     Route: 058
     Dates: start: 20230616
  7. NITRAZEPAM [Concomitant]
     Active Substance: NITRAZEPAM
     Dosage: UNK
     Route: 048
  8. QUAZEPAM [Concomitant]
     Active Substance: QUAZEPAM
     Dosage: UNK
     Route: 048
  9. HIBERNAL [CHLORPROMAZINE] [Concomitant]
     Dosage: UNK
     Route: 048
  10. ABILIFY [Concomitant]
     Active Substance: ARIPIPRAZOLE
     Dosage: UNK
     Route: 048
  11. RISPERIDONE [Concomitant]
     Active Substance: RISPERIDONE
     Dosage: UNK
     Route: 048
  12. RISPERIDONE [Concomitant]
     Active Substance: RISPERIDONE
     Dosage: UNK (DOSE DECREASED)
     Route: 048
  13. PAXIL CR [Concomitant]
     Active Substance: PAROXETINE HYDROCHLORIDE
     Dosage: UNK
     Route: 048
  14. LEXAPRO [Concomitant]
     Active Substance: ESCITALOPRAM OXALATE
     Dosage: UNK
     Route: 048
  15. BROMAZEPAM [Concomitant]
     Active Substance: BROMAZEPAM
     Dosage: UNK
     Route: 048
  16. LITHIUM CARBONATE [Concomitant]
     Active Substance: LITHIUM CARBONATE
     Dosage: UNK
     Route: 048
  17. LITHIUM CARBONATE [Concomitant]
     Active Substance: LITHIUM CARBONATE
     Dosage: UNK (DOSE DECREASED)
     Route: 048
  18. URAPIDIL [Concomitant]
     Active Substance: URAPIDIL
     Dosage: UNK
  19. PEMAFIBRATE [Concomitant]
     Active Substance: PEMAFIBRATE
     Dosage: UNK
     Route: 048
  20. POTASSIUM CHLORIDE [Concomitant]
     Active Substance: POTASSIUM CHLORIDE
     Dosage: UNK
     Route: 048
  21. POTASSIUM CHLORIDE [Concomitant]
     Active Substance: POTASSIUM CHLORIDE
     Dosage: UNK (DOSE DECREASED)
     Route: 048
  22. IMEGLIMIN HYDROCHLORIDE [Concomitant]
     Active Substance: IMEGLIMIN HYDROCHLORIDE
     Indication: Type 2 diabetes mellitus
     Dosage: UNK
     Route: 048
  23. METFORMIN HYDROCHLORIDE [Concomitant]
     Active Substance: METFORMIN HYDROCHLORIDE
     Indication: Type 2 diabetes mellitus
     Dosage: UNK
     Route: 048
  24. DIENOGEST [Concomitant]
     Active Substance: DIENOGEST
     Indication: Endometriosis
     Dosage: UNK
  25. MOUNJARO [Concomitant]
     Active Substance: TIRZEPATIDE
     Indication: Type 2 diabetes mellitus
     Dosage: UNK
     Route: 058

REACTIONS (5)
  - Hypokalaemia [Recovered/Resolved]
  - Myopathy [Recovered/Resolved]
  - Paralysis [Unknown]
  - Water intoxication [Unknown]
  - Diabetes mellitus inadequate control [Unknown]

NARRATIVE: CASE EVENT DATE: 20230615
